FAERS Safety Report 6219152-6 (Version None)
Quarter: 2009Q2

REPORT INFORMATION
  Report Type: 
  Country: None (occurrence: None)
  Receive Date: 20090605
  Receipt Date: 20090605
  Transmission Date: 20091009
  Serious: Yes (Death, Hospitalization)
  Sender: FDA-Public Use
  Company Number: None

PATIENT
  Sex: Male
  Weight: 92.0802 kg

DRUGS (10)
  1. VIDAZA [Suspect]
     Indication: PROSTATE CANCER
     Dosage: 150 MG/M2
     Dates: start: 20090504, end: 20090518
  2. DOCETAXEL [Suspect]
     Indication: PROSTATE CANCER
     Dosage: 75 MG/M2
     Dates: start: 20090504, end: 20090518
  3. SIMVASTATIN [Concomitant]
  4. GEMFIBROZIL [Concomitant]
  5. XANAX [Concomitant]
  6. LEXAPRO [Concomitant]
  7. CALCIUM WITH VITAMIN D [Concomitant]
  8. MULTI-VITAMIN [Concomitant]
  9. PERCOCET [Concomitant]
  10. FENTANYL [Concomitant]

REACTIONS (12)
  - AGGRESSION [None]
  - AGITATION [None]
  - BACTERIAL INFECTION [None]
  - CATHETER RELATED INFECTION [None]
  - CEREBROVASCULAR ACCIDENT [None]
  - DEPRESSED LEVEL OF CONSCIOUSNESS [None]
  - DUODENAL ULCER [None]
  - GASTROINTESTINAL HAEMORRHAGE [None]
  - HYPERHIDROSIS [None]
  - SEPSIS [None]
  - UNRESPONSIVE TO STIMULI [None]
  - VOMITING [None]
